FAERS Safety Report 5951080-3 (Version None)
Quarter: 2008Q4

REPORT INFORMATION
  Report Type: 
  Country: None (occurrence: None)
  Receive Date: 20081111
  Receipt Date: 20081111
  Transmission Date: 20090506
  Serious: Yes (Other)
  Sender: FDA-Public Use
  Company Number: None

PATIENT
  Sex: Female
  Weight: 73.6 kg

DRUGS (2)
  1. ACCUTANE [Suspect]
     Indication: ACNE
     Dosage: 40MG DAILY ORAL
     Route: 048
     Dates: start: 20081006, end: 20081107
  2. ACCUTANE [Suspect]
     Indication: SCAR
     Dosage: 40MG DAILY ORAL
     Route: 048
     Dates: start: 20081006, end: 20081107

REACTIONS (3)
  - DRUG DOSE OMISSION [None]
  - DRUG EXPOSURE DURING PREGNANCY [None]
  - PREGNANCY TEST POSITIVE [None]
